FAERS Safety Report 24700972 (Version 1)
Quarter: 2024Q4

REPORT INFORMATION
  Report Type: Spontaneous
  Country: SE (occurrence: SE)
  Receive Date: 20241205
  Receipt Date: 20241205
  Transmission Date: 20250114
  Serious: Yes (Life-Threatening)
  Sender: ASCEND THERAPEUTICS US, LLC
  Company Number: SE-Ascend Therapeutics US, LLC-2166521

PATIENT
  Age: 55 Year
  Sex: Female

DRUGS (2)
  1. ESTROGEL [Suspect]
     Active Substance: ESTRADIOL
     Indication: Vaginal haemorrhage
     Dates: start: 20241018
  2. ESTROGEL [Suspect]
     Active Substance: ESTRADIOL
     Dates: start: 20241018

REACTIONS (5)
  - Haemorrhage [Recovering/Resolving]
  - Anxiety [Recovering/Resolving]
  - Headache [Recovering/Resolving]
  - Dysmenorrhoea [Recovering/Resolving]
  - Panic attack [Recovering/Resolving]

NARRATIVE: CASE EVENT DATE: 20241025
